FAERS Safety Report 8848279 (Version 2)
Quarter: 2013Q4

REPORT INFORMATION
  Report Type: Spontaneous
  Country: US (occurrence: US)
  Receive Date: 20121018
  Receipt Date: 20131101
  Transmission Date: 20140711
  Serious: Yes (Hospitalization, Other)
  Sender: FDA-Public Use
  Company Number: US-ROCHE-1145191

PATIENT
  Age: 60 Year
  Sex: Male

DRUGS (8)
  1. AVASTIN [Suspect]
     Indication: COLORECTAL CANCER METASTATIC
     Dosage: ABOUT 1370
     Route: 042
     Dates: start: 20120820
  2. AVASTIN [Suspect]
     Indication: LUNG NEOPLASM MALIGNANT
  3. ALIMTA [Concomitant]
     Indication: CHEMOTHERAPY
     Route: 042
     Dates: start: 20120820
  4. DECADRON [Concomitant]
     Indication: CHEMOTHERAPY
     Route: 048
  5. PHENERGAN [Concomitant]
     Indication: NAUSEA
     Dosage: DOSE: 25, FREQUENCY: PM
     Route: 048
  6. BACLOFEN [Concomitant]
     Indication: PAIN
     Route: 048
  7. FOLIC ACID [Concomitant]
     Indication: CHEMOTHERAPY
     Route: 048
  8. PERCOCET [Concomitant]
     Indication: PAIN
     Dosage: DOSE: 10, FREQUENCY: PM
     Route: 065

REACTIONS (4)
  - Pulmonary embolism [Unknown]
  - Arrhythmia supraventricular [Unknown]
  - Deep vein thrombosis [Not Recovered/Not Resolved]
  - Atrial fibrillation [Recovered/Resolved]
